FAERS Safety Report 10079134 (Version 1)
Quarter: 2014Q2

REPORT INFORMATION
  Report Type: Spontaneous
  Country: US (occurrence: None)
  Receive Date: 20140414
  Receipt Date: 20140414
  Transmission Date: 20141212
  Serious: No
  Sender: FDA-Public Use
  Company Number: None

PATIENT
  Age: 42 Year
  Sex: Female
  Weight: 78.02 kg

DRUGS (7)
  1. POTIGA [Suspect]
     Indication: CONVULSION
     Dates: start: 201301
  2. POTIGA [Suspect]
     Indication: VAGAL NERVE STIMULATOR IMPLANTATION
     Dates: start: 201301
  3. KEPPRA [Concomitant]
  4. LAMICTAL [Concomitant]
  5. VIMPAT [Concomitant]
  6. DIAZEPAM [Concomitant]
  7. DIASTAT [Concomitant]

REACTIONS (5)
  - Urinary hesitation [None]
  - Anxiety [None]
  - Speech disorder [None]
  - Pollakiuria [None]
  - Urinary retention [None]
